FAERS Safety Report 5233089-0 (Version None)
Quarter: 2007Q1

REPORT INFORMATION
  Report Type: 
  Country: None (occurrence: None)
  Receive Date: 20061204
  Receipt Date: 20061018
  Transmission Date: 20070707
  Serious: No
  Sender: FDA-Public Use
  Company Number: 2006-BP-12232BP

PATIENT
  Age: 48 Year
  Sex: Male

DRUGS (8)
  1. SPIRIVA [Suspect]
     Indication: CHRONIC OBSTRUCTIVE PULMONARY DISEASE
     Dosage: 18 MCG (18 MCG,1 IN 1 D)
     Dates: start: 20061015
  2. FUZEON [Concomitant]
  3. OTHER ANTIRETROVIRAL MEDICATION (ANTIHYPERTENSIVES) [Concomitant]
  4. ANTIDEPRESSANTS (ANTIDEPRESSANTS) [Concomitant]
  5. ANXIETY MEDICATION(ALL OTHER THERAPEUTIC PRODUCTS) [Concomitant]
  6. ADVAIR (SERETIDE /01420901/) [Concomitant]
  7. CPAP TREATMENTS (ALL OTHER THERAPEUTIC PRODUCTS) [Concomitant]
  8. ALBUTEROL [Concomitant]

REACTIONS (3)
  - DRY MOUTH [None]
  - DYSPNOEA [None]
  - INCORRECT ROUTE OF DRUG ADMINISTRATION [None]
